FAERS Safety Report 4649464-9 (Version None)
Quarter: 2005Q2

REPORT INFORMATION
  Report Type: 
  Country: None (occurrence: None)
  Receive Date: 20050427
  Receipt Date: 20050411
  Transmission Date: 20051028
  Serious: Yes (Death)
  Sender: FDA-Public Use
  Company Number: 2005-UK-00488UK

PATIENT
  Age: 78 Year
  Sex: Male

DRUGS (11)
  1. SPIRIVA [Suspect]
     Indication: CHRONIC OBSTRUCTIVE PULMONARY DISEASE
     Dosage: IH
     Route: 055
     Dates: start: 20040201
  2. CO-CODAMOL (PANADEINE CO) (NR) [Suspect]
  3. SIMVASTATIN (NR) [Suspect]
  4. FUROSEMIDE [Suspect]
  5. ASPIRIN [Suspect]
  6. NICORANDIL (NICORANDIL) (NR) [Suspect]
  7. PARIET (RABERPAZOLE SODIUM) (NR) [Suspect]
  8. SERETIDE (NR) [Suspect]
  9. SALBUTAMOL (SALBUTAMOL) (NR) [Suspect]
  10. ISOSORBIDE MONONITRATE [Suspect]
  11. BISOPROLOL FUMARATE [Suspect]

REACTIONS (2)
  - LEFT VENTRICULAR FAILURE [None]
  - MYOCARDIAL ISCHAEMIA [None]
